FAERS Safety Report 8847662 (Version 1)
Quarter: 2012Q4

REPORT INFORMATION
  Report Type: 
  Country: FR (occurrence: FR)
  Receive Date: 20121018
  Receipt Date: 20121018
  Transmission Date: 20130627
  Serious: Yes (Death, Hospitalization)
  Sender: FDA-Public Use
  Company Number: FR-EISAI INC-E2020-11520-SPO-FR

PATIENT
  Age: 80 Year
  Sex: Female

DRUGS (14)
  1. ARICEPT [Suspect]
     Indication: ALZHEIMER^S DISEASE
     Route: 048
     Dates: end: 20120903
  2. XATRAL [Suspect]
     Indication: URINARY RETENTION
     Dosage: 10 mg/day
     Route: 048
     Dates: end: 20120814
  3. FLUCONAZOLE [Suspect]
     Indication: INFECTION
     Dosage: 200 mg/day
     Route: 048
     Dates: end: 20120814
  4. ILOPROST [Suspect]
     Indication: ISCHEMIA
     Dosage: 0.05 mg/day
     Route: 042
     Dates: start: 20120816, end: 20120820
  5. PREVISCAN [Suspect]
     Indication: PROPHYLAXIS
     Dosage: 10 mg/day
     Route: 048
     Dates: start: 20120814, end: 20120822
  6. SEROPLEX [Suspect]
     Indication: DEPRESSIVE EPISODE
     Dosage: 10 mg/day
     Route: 048
     Dates: start: 20120824, end: 20120826
  7. FUROSEMIDE [Concomitant]
     Dosage: unknown
     Dates: end: 20120814
  8. VANOCYMCIN [Concomitant]
     Dosage: unknown
     Dates: end: 20120820
  9. DRIPTANE [Concomitant]
     Dosage: unknown
     Dates: end: 20120824
  10. PARACETAMOL [Concomitant]
     Dosage: unknown
     Dates: end: 20120904
  11. INEXIUM [Concomitant]
     Dosage: unknown
     Dates: end: 20120904
  12. EFFIZINC [Concomitant]
     Dosage: unknown
     Dates: end: 20120902
  13. DIFFU K [Concomitant]
     Dosage: unknown
     Dates: end: 20120917
  14. VITAMIN D [Concomitant]
     Dosage: unknown
     Dates: end: 20120917

REACTIONS (1)
  - Hepatitis cholestatic [Fatal]
